FAERS Safety Report 4909112-7 (Version None)
Quarter: 2006Q1

REPORT INFORMATION
  Report Type: 
  Country: None (occurrence: None)
  Receive Date: 20060210
  Receipt Date: 20060210
  Transmission Date: 20060701
  Serious: No
  Sender: FDA-Public Use
  Company Number: None

PATIENT
  Age: 68 Year
  Sex: Female
  Weight: 77.1115 kg

DRUGS (9)
  1. IMDUR [Suspect]
     Indication: CARDIAC DISORDER
     Dosage: 120 MG PCE DAILY ORALLY
     Route: 048
     Dates: start: 20051122
  2. VERELAN [Concomitant]
  3. PLAVIX [Concomitant]
  4. ASPIRIN [Concomitant]
  5. NEXIUM [Concomitant]
  6. HYTRIN [Concomitant]
  7. ZOLOFT [Concomitant]
  8. VALIUM [Concomitant]
  9. SYNTHROID [Concomitant]

REACTIONS (3)
  - CHEST PAIN [None]
  - FATIGUE [None]
  - MEDICATION RESIDUE [None]
